FAERS Safety Report 8890265 (Version 1)
Quarter: 2012Q4

REPORT INFORMATION
  Report Type: Spontaneous
  Country: ES (occurrence: None)
  Receive Date: 20121031
  Receipt Date: 20121031
  Transmission Date: 20130627
  Serious: Yes (Other)
  Sender: FDA-Public Use
  Company Number: TPA2012A08326

PATIENT
  Age: 50 Year
  Sex: Male

DRUGS (1)
  1. ADENURIC [Suspect]
     Indication: GOUT
     Dosage: 80  mg  (80 mg, 1 in 1 D)
     Route: 048
     Dates: start: 20120410, end: 20120503

REACTIONS (1)
  - Hypertensive crisis [None]
